FAERS Safety Report 24383623 (Version 1)
Quarter: 2024Q3

REPORT INFORMATION
  Report Type: Spontaneous
  Country: US (occurrence: None)
  Receive Date: 20240930
  Receipt Date: 20240930
  Transmission Date: 20241017
  Serious: Yes (Life-Threatening)
  Sender: Public
  Company Number: None

PATIENT
  Age: 78 Year
  Sex: Male
  Weight: 70.65 kg

DRUGS (1)
  1. FERUMOXYTOL [Suspect]
     Active Substance: FERUMOXYTOL
     Indication: Iron deficiency anaemia
     Dosage: 510 MG ONCE INTRAVENOUS?
     Route: 042
     Dates: start: 20240930, end: 20240930

REACTIONS (4)
  - Unresponsive to stimuli [None]
  - Respiratory arrest [None]
  - Pulse absent [None]
  - Infusion related reaction [None]

NARRATIVE: CASE EVENT DATE: 20240930
